FAERS Safety Report 6533748-3 (Version None)
Quarter: 2010Q1

REPORT INFORMATION
  Report Type: 
  Country: None (occurrence: None)
  Receive Date: 20100111
  Receipt Date: 20090617
  Transmission Date: 20100710
  Serious: No
  Sender: FDA-Public Use
  Company Number: US-ABBOTT-09P-163-0580626-00

PATIENT
  Sex: Female

DRUGS (1)
  1. VICODIN [Suspect]
     Indication: DRUG USE FOR UNKNOWN INDICATION

REACTIONS (2)
  - ABDOMINAL DISCOMFORT [None]
  - CONSTIPATION [None]
